FAERS Safety Report 23323835 (Version 1)
Quarter: 2023Q4

REPORT INFORMATION
  Report Type: Report from Study
  Country: US (occurrence: US)
  Receive Date: 20231220
  Receipt Date: 20231220
  Transmission Date: 20240110
  Serious: Yes (Hospitalization, Other)
  Sender: FDA-Public Use
  Company Number: US-ABBVIE-5549315

PATIENT
  Age: 75 Year
  Sex: Male
  Weight: 81.646 kg

DRUGS (13)
  1. CREON [Suspect]
     Active Substance: PANCRELIPASE AMYLASE\PANCRELIPASE LIPASE\PANCRELIPASE PROTEASE
     Indication: Pancreatic failure
     Dosage: FORM STRENGTH: 36000 UNIT,?FREQUENCY TEXT: THREE CAPSULES PER MEAL AND TWO CAPSULES PER SNACKS,?S...
     Route: 048
     Dates: start: 202209
  2. CARVEDILOL [Concomitant]
     Active Substance: CARVEDILOL
     Indication: Cardiovascular event prophylaxis
  3. TAMSULOSIN [Concomitant]
     Active Substance: TAMSULOSIN
     Indication: Nocturia
  4. LEVOTHYROXINE [Concomitant]
     Active Substance: LEVOTHYROXINE
     Indication: Hypothyroidism
  5. FENOFIBRATE [Concomitant]
     Active Substance: FENOFIBRATE
     Indication: Blood cholesterol increased
  6. EZETIMIBE [Concomitant]
     Active Substance: EZETIMIBE
     Indication: Blood cholesterol increased
  7. FOLIC ACID [Concomitant]
     Active Substance: FOLIC ACID
     Indication: Product used for unknown indication
  8. ATORVASTATIN [Concomitant]
     Active Substance: ATORVASTATIN
     Indication: Blood cholesterol increased
  9. PREGABALIN [Concomitant]
     Active Substance: PREGABALIN
     Indication: Neuropathy peripheral
  10. CYMBALTA [Concomitant]
     Active Substance: DULOXETINE HYDROCHLORIDE
     Indication: Neuropathy peripheral
  11. OMEPRAZOLE [Concomitant]
     Active Substance: OMEPRAZOLE
     Indication: Gastrooesophageal reflux disease
  12. METFORMIN [Concomitant]
     Active Substance: METFORMIN HYDROCHLORIDE
     Indication: Blood glucose abnormal
     Dosage: FORM STRENGTH: 1000 MILLIGRAM
  13. MODAFINIL [Concomitant]
     Active Substance: MODAFINIL
     Indication: Asthenia

REACTIONS (7)
  - Neoplasm malignant [Recovering/Resolving]
  - Hiatus hernia [Recovered/Resolved]
  - Pancreatic failure [Not Recovered/Not Resolved]
  - Faeces soft [Recovered/Resolved]
  - Incision site swelling [Recovered/Resolved]
  - Tumour marker increased [Recovering/Resolving]
  - Pancreatic disorder [Not Recovered/Not Resolved]

NARRATIVE: CASE EVENT DATE: 20221001
